FAERS Safety Report 8223038-5 (Version None)
Quarter: 2012Q1

REPORT INFORMATION
  Report Type: 
  Country: None (occurrence: None)
  Receive Date: 20120321
  Receipt Date: 20120308
  Transmission Date: 20120608
  Serious: Yes (Death, Hospitalization)
  Sender: FDA-Public Use
  Company Number: US-ASTRAZENECA-2012SE17577

PATIENT
  Age: 65 Year
  Sex: Male

DRUGS (11)
  1. FOSCARNET [Suspect]
     Indication: CYTOMEGALOVIRUS INFECTION
     Route: 042
  2. ACYCLOVIR ACTAVIS [Concomitant]
  3. MITOXANTRONE [Concomitant]
     Indication: MYELODYSPLASTIC SYNDROME
  4. RITUXIMAB [Concomitant]
     Indication: MYELODYSPLASTIC SYNDROME
  5. RABIT ANTI-HUMAN THYMOCYTE IMMUNOGLOBULIN [Concomitant]
     Indication: MYELODYSPLASTIC SYNDROME
  6. VALACICLOVIR [Concomitant]
  7. ETOPOSIDE [Concomitant]
     Indication: MYELODYSPLASTIC SYNDROME
  8. IDARUBICIN HCL [Concomitant]
     Indication: MYELODYSPLASTIC SYNDROME
  9. CYTARABINE [Concomitant]
     Indication: MYELODYSPLASTIC SYNDROME
  10. THIOTEPA [Concomitant]
     Indication: MYELODYSPLASTIC SYNDROME
  11. FLUDARABINE PHOSPHATE [Concomitant]
     Indication: MYELODYSPLASTIC SYNDROME

REACTIONS (10)
  - CNS VENTRICULITIS [None]
  - DISORIENTATION [None]
  - NEUROLOGICAL DECOMPENSATION [None]
  - HYDROCEPHALUS [None]
  - ENCEPHALITIS CYTOMEGALOVIRUS [None]
  - NERVOUS SYSTEM DISORDER [None]
  - LETHARGY [None]
  - DISTURBANCE IN ATTENTION [None]
  - EPILEPSY [None]
  - GENERAL PHYSICAL HEALTH DETERIORATION [None]
